FAERS Safety Report 5571515-8 (Version None)
Quarter: 2007Q4

REPORT INFORMATION
  Report Type: 
  Country: None (occurrence: None)
  Receive Date: 20071221
  Receipt Date: 20071217
  Transmission Date: 20080405
  Serious: Yes (Hospitalization)
  Sender: FDA-Public Use
  Company Number: JP-ELI_LILLY_AND_COMPANY-JP200707003852

PATIENT
  Sex: Female

DRUGS (5)
  1. EVISTA [Suspect]
     Indication: OSTEOPOROSIS
     Dosage: 60 MG, DAILY (1/D)
     Route: 048
     Dates: start: 20050708, end: 20070331
  2. ROCALTROL [Concomitant]
     Indication: OSTEOPOROSIS
     Dosage: 0.5 UG, DAILY (1/D)
     Route: 048
     Dates: start: 20050708, end: 20070331
  3. PEON [Concomitant]
     Indication: BACK PAIN
     Dosage: 80 MG, UNK
     Route: 048
     Dates: start: 20050708, end: 20070331
  4. KELNAC [Concomitant]
     Indication: PROPHYLAXIS
     Dosage: 80 MG, 3/D
     Route: 048
     Dates: start: 20050708, end: 20070331
  5. SELTOUCH [Concomitant]
     Indication: BACK PAIN
     Dosage: UNK, UNK
     Route: 062
     Dates: start: 20050708, end: 20070331

REACTIONS (3)
  - CEREBRAL INFARCTION [None]
  - DEEP VEIN THROMBOSIS [None]
  - PULMONARY INFARCTION [None]
